FAERS Safety Report 5201319-7 (Version None)
Quarter: 2007Q1

REPORT INFORMATION
  Report Type: 
  Country: None (occurrence: None)
  Receive Date: 20070103
  Receipt Date: 20061226
  Transmission Date: 20070707
  Serious: Yes (Other)
  Sender: FDA-Public Use
  Company Number: 2006-06329

PATIENT
  Age: 21 Year
  Sex: Male

DRUGS (3)
  1. PREDNISOLONE [Suspect]
     Indication: ACUTE LYMPHOCYTIC LEUKAEMIA
     Dosage: 1680MG OVER 35 DAYS, THEN TAPER
     Dates: start: 20040304, end: 20040418
  2. DEXAMETHASONE [Suspect]
     Indication: ACUTE LYMPHOCYTIC LEUKAEMIA
     Dosage: TOTAL 224 MG OVER 35 DAYS
  3. CHEMOTHERAPY DRUGS - UNSPECIFIED [Concomitant]

REACTIONS (1)
  - HEPATIC STEATOSIS [None]
